FAERS Safety Report 10211649 (Version 1)
Quarter: 2014Q2

REPORT INFORMATION
  Report Type: Spontaneous
  Country: US (occurrence: US)
  Receive Date: 20140602
  Receipt Date: 20140602
  Transmission Date: 20141212
  Serious: No
  Sender: FDA-Public Use
  Company Number: US-GLAXOSMITHKLINE-A1062984A

PATIENT
  Age: 22 Year
  Sex: Male
  Weight: 88.6 kg

DRUGS (1)
  1. FABIOR [Suspect]
     Indication: ACNE
     Dosage: 1APP PER DAY
     Route: 065
     Dates: start: 20140120, end: 20140122

REACTIONS (3)
  - Rash [Recovered/Resolved]
  - Urticaria [Recovered/Resolved]
  - Dermatitis contact [Recovered/Resolved]
